FAERS Safety Report 6105615-0 (Version None)
Quarter: 2009Q1

REPORT INFORMATION
  Report Type: 
  Country: None (occurrence: None)
  Receive Date: 20090306
  Receipt Date: 20090304
  Transmission Date: 20090719
  Serious: Yes (Death)
  Sender: FDA-Public Use
  Company Number: JP-ASTRAZENECA-2009AP01284

PATIENT
  Age: 26970 Day
  Sex: Female
  Weight: 48 kg

DRUGS (16)
  1. IRESSA [Suspect]
     Indication: LUNG ADENOCARCINOMA
     Route: 048
     Dates: start: 20081215, end: 20090212
  2. NAIXAN [Concomitant]
     Indication: TUMOUR ASSOCIATED FEVER
     Dosage: DOSE UNKNOWN
     Route: 048
     Dates: start: 20080910, end: 20090212
  3. CYTOTEC [Concomitant]
     Indication: PROPHYLAXIS
     Dosage: DOSE UNKNOWN
     Route: 048
     Dates: start: 20080910, end: 20090212
  4. CLARITH [Concomitant]
     Indication: BRONCHITIS
     Dosage: DOSE UNKNOWN
     Route: 048
     Dates: start: 20080910, end: 20090212
  5. ASTOMIN [Concomitant]
     Indication: COUGH
     Dosage: DOSE UNKNOWN
     Route: 048
     Dates: start: 20080910, end: 20090212
  6. EVAMYL [Concomitant]
     Indication: INSOMNIA
     Dosage: DOSE UNKNOWN
     Route: 048
     Dates: start: 20080917, end: 20090212
  7. MAGMITT [Concomitant]
     Indication: CONSTIPATION
     Route: 048
     Dates: start: 20080919, end: 20090212
  8. OMEPRAL [Concomitant]
     Indication: PROPHYLAXIS
     Route: 048
     Dates: start: 20090110, end: 20090212
  9. DECADRON [Concomitant]
     Indication: BRAIN OEDEMA
     Route: 041
     Dates: start: 20090110, end: 20090113
  10. DECADRON [Concomitant]
     Route: 041
     Dates: start: 20090114, end: 20090117
  11. DECADRON [Concomitant]
     Route: 041
     Dates: start: 20090118, end: 20090126
  12. GLYCEOL [Concomitant]
     Indication: BRAIN OEDEMA
     Route: 041
     Dates: start: 20090110, end: 20090130
  13. CRAVIT [Concomitant]
     Indication: URINARY TRACT INFECTION
     Route: 048
     Dates: start: 20090119, end: 20090125
  14. MODACIN [Concomitant]
     Indication: PNEUMONIA
     Route: 041
     Dates: start: 20090130, end: 20090206
  15. PREDONINE [Concomitant]
     Indication: BRAIN OEDEMA
     Route: 048
     Dates: start: 20090127, end: 20090131
  16. RADIOTHERAPY [Concomitant]
     Indication: BRAIN OEDEMA
     Dosage: TOTAL RADIATION DOSE OF 30 GY
     Dates: start: 20090113, end: 20090126

REACTIONS (1)
  - LUNG DISORDER [None]
